FAERS Safety Report 18405177 (Version 1)
Quarter: 2020Q4

REPORT INFORMATION
  Report Type: Spontaneous
  Country: AR (occurrence: AR)
  Receive Date: 20201020
  Receipt Date: 20201020
  Transmission Date: 20210114
  Serious: Yes (Life-Threatening, Other)
  Sender: FDA-Public Use
  Company Number: AR-PFIZER INC-2020404736

PATIENT
  Age: 74 Year
  Sex: Female

DRUGS (3)
  1. LETROZOLE. [Suspect]
     Active Substance: LETROZOLE
  2. IBRANCE [Suspect]
     Active Substance: PALBOCICLIB
     Indication: BREAST CANCER METASTATIC
     Dosage: 75 MG, DAILY, SCHEME 3X1
     Dates: start: 20171018
  3. CAPECITABINA [Suspect]
     Active Substance: CAPECITABINE

REACTIONS (8)
  - Renal failure [Unknown]
  - Hepatic failure [Unknown]
  - Diarrhoea [Unknown]
  - Neoplasm progression [Unknown]
  - Oral pain [Unknown]
  - Malnutrition [Unknown]
  - Dehydration [Unknown]
  - General physical health deterioration [Unknown]

NARRATIVE: CASE EVENT DATE: 20201016
